FAERS Safety Report 18187084 (Version 1)
Quarter: 2020Q3

REPORT INFORMATION
  Report Type: Spontaneous
  Country: US (occurrence: US)
  Receive Date: 20200824
  Receipt Date: 20200824
  Transmission Date: 20201103
  Serious: Yes (Hospitalization)
  Sender: FDA-Public Use
  Company Number: None

PATIENT
  Age: 53 Year
  Sex: Male

DRUGS (18)
  1. CEPHALEXIN. [Concomitant]
     Active Substance: CEPHALEXIN
  2. OSELTAMIVIR [Concomitant]
     Active Substance: OSELTAMIVIR
  3. SIMVASTATIN. [Concomitant]
     Active Substance: SIMVASTATIN
  4. ALLOPURINOL. [Concomitant]
     Active Substance: ALLOPURINOL
  5. ATENOLOL. [Concomitant]
     Active Substance: ATENOLOL
  6. DILTIAZEM. [Concomitant]
     Active Substance: DILTIAZEM
  7. FOLIC ACID. [Concomitant]
     Active Substance: FOLIC ACID
  8. LOSARTAN POT [Concomitant]
     Active Substance: LOSARTAN POTASSIUM
  9. METHOTREXATE. [Concomitant]
     Active Substance: METHOTREXATE
  10. POT CHLORIDE ER [Concomitant]
  11. POLMYXIN B/ TRIMETHP [Concomitant]
  12. HUMIRA [Suspect]
     Active Substance: ADALIMUMAB
     Indication: RHEUMATOID ARTHRITIS
     Dosage: ?          OTHER DOSE:1 PEN;?
     Route: 058
     Dates: start: 20191123
  13. VITAMIN D [Concomitant]
     Active Substance: VITAMIN D NOS
  14. HYDROCHLOROT [Concomitant]
     Active Substance: HYDROCHLOROTHIAZIDE
  15. METHYPRED [Concomitant]
  16. PENTOXIFYLLIER [Concomitant]
  17. GLIPIZIDE ER [Concomitant]
     Active Substance: GLIPIZIDE
  18. MONTELUKAST [Concomitant]
     Active Substance: MONTELUKAST SODIUM

REACTIONS (6)
  - COVID-19 [None]
  - Swelling [None]
  - Loss of personal independence in daily activities [None]
  - Therapy interrupted [None]
  - Insomnia [None]
  - Hypoaesthesia [None]

NARRATIVE: CASE EVENT DATE: 20200821
